FAERS Safety Report 16099058 (Version 1)
Quarter: 2019Q1

REPORT INFORMATION
  Report Type: Spontaneous
  Country: US (occurrence: US)
  Receive Date: 20190321
  Receipt Date: 20190321
  Transmission Date: 20190418
  Serious: Yes (Hospitalization, Other)
  Sender: FDA-Public Use
  Company Number: US-TEVA-2019-US-1027830

PATIENT
  Age: 75 Year
  Sex: Male

DRUGS (6)
  1. PREDNISONE. [Suspect]
     Active Substance: PREDNISONE
     Indication: EYE PAIN
  2. PREDNISONE. [Suspect]
     Active Substance: PREDNISONE
     Indication: VISION BLURRED
  3. RITUXIMAB. [Suspect]
     Active Substance: RITUXIMAB
     Indication: NON-HODGKIN^S LYMPHOMA
     Dosage: CYCLIC (6 CYCLES)
     Route: 065
     Dates: start: 201703, end: 201710
  4. PREDNISONE. [Suspect]
     Active Substance: PREDNISONE
     Indication: DIPLOPIA
  5. BENDAMUSTINE [Suspect]
     Active Substance: BENDAMUSTINE
     Indication: NON-HODGKIN^S LYMPHOMA
     Dosage: CYCLIC (6 CYCLES)
     Route: 042
     Dates: start: 201703, end: 201710
  6. PREDNISONE. [Suspect]
     Active Substance: PREDNISONE
     Indication: FACIAL PAIN
     Dosage: UNKNOWN FREQ.
     Route: 065
     Dates: start: 201712

REACTIONS (4)
  - Systemic mycosis [Recovered/Resolved]
  - Orbital apex syndrome [Recovered/Resolved]
  - Alternaria infection [Recovered/Resolved]
  - Sinusitis fungal [Recovered/Resolved]

NARRATIVE: CASE EVENT DATE: 2017
